FAERS Safety Report 10343339 (Version 1)
Quarter: 2014Q3

REPORT INFORMATION
  Report Type: Spontaneous
  Country: AU (occurrence: None)
  Receive Date: 20140723
  Receipt Date: 20140723
  Transmission Date: 20150326
  Serious: Yes (Other)
  Sender: FDA-Public Use
  Company Number: 2014-20002

PATIENT
  Sex: Female

DRUGS (1)
  1. EYLEA [Suspect]
     Active Substance: AFLIBERCEPT
     Indication: AGE-RELATED MACULAR DEGENERATION
     Dosage: 2 MG OS Q. 3/12. THE TOTAL NUMBER OF EYELEA INJECTIONS WAS NOT PROVIDED
     Route: 031
     Dates: start: 20130124

REACTIONS (4)
  - Renal cancer [None]
  - Glaucoma [None]
  - Inappropriate schedule of drug administration [None]
  - Cataract [None]
